FAERS Safety Report 16888785 (Version 3)
Quarter: 2019Q4

REPORT INFORMATION
  Report Type: Spontaneous
  Country: US (occurrence: US)
  Receive Date: 20191007
  Receipt Date: 20191203
  Transmission Date: 20200122
  Serious: Yes (Other)
  Sender: FDA-Public Use
  Company Number: US-AUROBINDO-AUR-APL-2019-064756

PATIENT
  Age: 89 Year
  Sex: Male
  Weight: 56.6 kg

DRUGS (2)
  1. VALSARTAN AND HYDROCHLOROTHIAZIDE [Suspect]
     Active Substance: HYDROCHLOROTHIAZIDE\VALSARTAN
     Indication: BLOOD PRESSURE MEASUREMENT
     Dosage: UNK, ONCE A DAY, SINCE ONE WEEK AGO
     Route: 065
     Dates: end: 20191001
  2. CALCIUM [Concomitant]
     Active Substance: CALCIUM
     Indication: PRODUCT USED FOR UNKNOWN INDICATION
     Dosage: UNK
     Route: 065

REACTIONS (4)
  - Product use complaint [Not Recovered/Not Resolved]
  - Drug ineffective [Unknown]
  - Product size issue [Unknown]
  - Blood pressure increased [Not Recovered/Not Resolved]
